FAERS Safety Report 6690700-5 (Version None)
Quarter: 2010Q2

REPORT INFORMATION
  Report Type: 
  Country: None (occurrence: None)
  Receive Date: 20100421
  Receipt Date: 20100409
  Transmission Date: 20101027
  Serious: Yes (Hospitalization)
  Sender: FDA-Public Use
  Company Number: US-SANOFI-AVENTIS-2010SA021242

PATIENT
  Age: 68 Year
  Sex: Male

DRUGS (3)
  1. LANTUS [Suspect]
     Route: 058
     Dates: start: 20000101, end: 20100401
  2. APIDRA [Suspect]
     Route: 058
     Dates: start: 20060101
  3. INFLUENZA VACCINE [Suspect]
     Dates: start: 20100101

REACTIONS (4)
  - BALANCE DISORDER [None]
  - FALL [None]
  - GUILLAIN-BARRE SYNDROME [None]
  - MOBILITY DECREASED [None]
